FAERS Safety Report 24657290 (Version 1)
Quarter: 2024Q4

REPORT INFORMATION
  Report Type: Report from Study
  Country: CO (occurrence: CO)
  Receive Date: 20241125
  Receipt Date: 20241125
  Transmission Date: 20250115
  Serious: Yes (Hospitalization, Other)
  Sender: AMGEN
  Company Number: CO-AMGEN-COLSL2024230558

PATIENT
  Age: 71 Year
  Sex: Male

DRUGS (1)
  1. REPATHA [Suspect]
     Active Substance: EVOLOCUMAB
     Indication: Low density lipoprotein increased
     Dosage: 140 MILLIGRAM, Q2WK
     Route: 058
     Dates: start: 20240507, end: 20241107

REACTIONS (9)
  - Unevaluable event [Unknown]
  - Angina pectoris [Recovering/Resolving]
  - Treatment failure [Recovering/Resolving]
  - Chest pain [Recovering/Resolving]
  - Headache [Recovering/Resolving]
  - Dizziness [Recovering/Resolving]
  - Nasal congestion [Recovering/Resolving]
  - Cough [Recovering/Resolving]
  - Rhinitis [Recovering/Resolving]
